FAERS Safety Report 5931161-0 (Version None)
Quarter: 2008Q4

REPORT INFORMATION
  Report Type: 
  Country: None (occurrence: None)
  Receive Date: 20081027
  Receipt Date: 20081017
  Transmission Date: 20090506
  Serious: Yes (Other)
  Sender: FDA-Public Use
  Company Number: PHHY2008DE25402

PATIENT
  Age: 94 Year
  Sex: Male

DRUGS (3)
  1. RASILEZ [Suspect]
  2. PROVAS COMP [Suspect]
  3. AMLODIPINE [Concomitant]

REACTIONS (2)
  - BLOOD PRESSURE FLUCTUATION [None]
  - LEUKOPENIA [None]
